FAERS Safety Report 6150471-8 (Version None)
Quarter: 2009Q2

REPORT INFORMATION
  Report Type: 
  Country: None (occurrence: None)
  Receive Date: 20090409
  Receipt Date: 20090406
  Transmission Date: 20091009
  Serious: Yes (Death)
  Sender: FDA-Public Use
  Company Number: RS-JNJFOC-20090401798

PATIENT
  Weight: 8 kg

DRUGS (2)
  1. TOPAMAX [Suspect]
     Indication: EPILEPSY
     Route: 048
  2. EFTIL [Concomitant]
     Indication: EPILEPSY
     Route: 065

REACTIONS (1)
  - DEATH [None]
